FAERS Safety Report 8367398-3 (Version None)
Quarter: 2012Q2

REPORT INFORMATION
  Report Type: 
  Country: None (occurrence: None)
  Receive Date: 20120517
  Receipt Date: 20120510
  Transmission Date: 20120825
  Serious: Yes (Hospitalization, Disabling)
  Sender: FDA-Public Use
  Company Number: US-MERCK-1203USA03372

PATIENT
  Age: 71 Year
  Sex: Female

DRUGS (6)
  1. FOSAMAX [Suspect]
     Route: 048
     Dates: end: 20070701
  2. FOSAMAX [Suspect]
     Route: 048
     Dates: start: 19951204, end: 20070701
  3. FOSAMAX [Suspect]
     Route: 048
     Dates: start: 20070701
  4. FOSAMAX [Suspect]
     Route: 048
     Dates: start: 20070701
  5. FOSAMAX [Suspect]
     Route: 048
     Dates: end: 20070701
  6. FOSAMAX [Suspect]
     Indication: OSTEOPOROSIS
     Route: 048
     Dates: start: 19951204, end: 20070701

REACTIONS (6)
  - ANKLE FRACTURE [None]
  - LOW TURNOVER OSTEOPATHY [None]
  - SPINAL COMPRESSION FRACTURE [None]
  - FEMUR FRACTURE [None]
  - SJOGREN'S SYNDROME [None]
  - RIB FRACTURE [None]
